FAERS Safety Report 7372304-4 (Version None)
Quarter: 2011Q1

REPORT INFORMATION
  Report Type: 
  Country: None (occurrence: None)
  Receive Date: 20110324
  Receipt Date: 20110314
  Transmission Date: 20110831
  Serious: Yes (Death, Hospitalization)
  Sender: FDA-Public Use
  Company Number: B0679846A

PATIENT
  Sex: Female
  Weight: 40 kg

DRUGS (4)
  1. MYOLASTAN [Concomitant]
     Route: 065
  2. ACETAMINOPHEN [Concomitant]
     Route: 065
  3. ARIXTRA [Suspect]
     Indication: THROMBOSIS PROPHYLAXIS
     Dosage: 2.5MG PER DAY
     Route: 058
     Dates: start: 20100311, end: 20100514
  4. LOW MOLECULAR WEIGHT HEPARIN [Concomitant]

REACTIONS (6)
  - ALTERED STATE OF CONSCIOUSNESS [None]
  - MALAISE [None]
  - INCORRECT DRUG ADMINISTRATION DURATION [None]
  - HAEMORRHAGIC STROKE [None]
  - CEREBRAL HAEMATOMA [None]
  - CEREBRAL HAEMORRHAGE [None]
